FAERS Safety Report 12476151 (Version 1)
Quarter: 2016Q2

REPORT INFORMATION
  Report Type: Spontaneous
  Country: US (occurrence: US)
  Receive Date: 20160617
  Receipt Date: 20160617
  Transmission Date: 20160815
  Serious: No
  Sender: FDA-Public Use
  Company Number: US-WOCKHARDT USA, LLC-1053916

PATIENT
  Age: 49 Year
  Sex: Female

DRUGS (3)
  1. AZITHROMYCIN ANHYDROUS. [Suspect]
     Active Substance: AZITHROMYCIN ANHYDROUS
     Indication: VIRAL INFECTION
     Route: 048
     Dates: start: 201605, end: 201605
  2. ATENOLOL. [Concomitant]
     Active Substance: ATENOLOL
  3. LISINOPRIL. [Concomitant]
     Active Substance: LISINOPRIL

REACTIONS (5)
  - Proctalgia [None]
  - Abdominal pain [None]
  - Diarrhoea [Not Recovered/Not Resolved]
  - Diarrhoea [None]
  - Anorectal discomfort [None]

NARRATIVE: CASE EVENT DATE: 201605
